FAERS Safety Report 7807785-2 (Version None)
Quarter: 2011Q4

REPORT INFORMATION
  Report Type: 
  Country: None (occurrence: None)
  Receive Date: 20111011
  Receipt Date: 20111004
  Transmission Date: 20120403
  Serious: Yes (Death, Life-Threatening, Hospitalization)
  Sender: FDA-Public Use
  Company Number: SE-CEPHALON-2011003954

PATIENT

DRUGS (3)
  1. LENALIDOMIDE [Suspect]
     Dates: start: 20100622, end: 20101006
  2. RITUXIMAB [Suspect]
     Dates: start: 20100622, end: 20101216
  3. BENDAMUSTINE HCL [Suspect]
     Route: 042
     Dates: start: 20100622, end: 20101217

REACTIONS (1)
  - BONE MARROW FAILURE [None]
